FAERS Safety Report 7370794-4 (Version None)
Quarter: 2011Q1

REPORT INFORMATION
  Report Type: 
  Country: None (occurrence: None)
  Receive Date: 20110324
  Receipt Date: 20110310
  Transmission Date: 20110831
  Serious: Yes (Hospitalization)
  Sender: FDA-Public Use
  Company Number: US-BIOGENIDEC-2010BI045116

PATIENT
  Age: 58 Year
  Sex: Male

DRUGS (7)
  1. INSULIN [Concomitant]
     Indication: DIABETES MELLITUS
  2. TYSABRI [Suspect]
     Route: 042
     Dates: start: 20061102, end: 20080123
  3. TYSABRI [Suspect]
     Indication: MULTIPLE SCLEROSIS
     Route: 042
     Dates: start: 20080220, end: 20090710
  4. AVONEX [Concomitant]
     Route: 030
     Dates: start: 20061101
  5. AVONEX [Concomitant]
     Route: 030
     Dates: start: 20071101
  6. TYSABRI [Suspect]
     Route: 042
     Dates: start: 20100514
  7. AVONEX [Concomitant]
     Route: 030
     Dates: start: 20010401, end: 20031231

REACTIONS (9)
  - FATIGUE [None]
  - APATHY [None]
  - RASH PAPULAR [None]
  - HERPES ZOSTER [None]
  - CENTRAL VENOUS CATHETERISATION [None]
  - RASH MACULAR [None]
  - RASH PRURITIC [None]
  - ASTHENIA [None]
  - POOR VENOUS ACCESS [None]
